FAERS Safety Report 9787939 (Version 1)
Quarter: 2013Q4

REPORT INFORMATION
  Report Type: Spontaneous
  Country: US (occurrence: None)
  Receive Date: 20131227
  Receipt Date: 20131227
  Transmission Date: 20140711
  Serious: No
  Sender: FDA-Public Use
  Company Number: None

PATIENT
  Age: 69 Year
  Sex: Female
  Weight: 94 kg

DRUGS (4)
  1. ELIQUIS 5MG PFIZER/BRISTOL MYERS SQUIBB [Suspect]
     Indication: ATRIAL FIBRILLATION
     Route: 048
     Dates: start: 20131101, end: 20131220
  2. ELIQUIS 5MG PFIZER/BRISTOL MYERS SQUIBB [Suspect]
     Indication: CEREBROVASCULAR ACCIDENT PROPHYLAXIS
     Route: 048
     Dates: start: 20131101, end: 20131220
  3. LISINOPRIL [Concomitant]
  4. METORPROLOL [Concomitant]

REACTIONS (2)
  - Pruritus [None]
  - Headache [None]
